FAERS Safety Report 5212256-6 (Version None)
Quarter: 2007Q1

REPORT INFORMATION
  Report Type: 
  Country: None (occurrence: None)
  Receive Date: 20070118
  Receipt Date: 20070111
  Transmission Date: 20070707
  Serious: Yes (Other)
  Sender: FDA-Public Use
  Company Number: DE-BOEHRINGER INGELHEIM PHARMACEUTICALS, INC.-2007-DE-00260DE

PATIENT
  Age: 68 Year
  Sex: Male

DRUGS (1)
  1. ALNA OCAS [Suspect]
     Indication: PROSTATE EXAMINATION ABNORMAL
     Route: 048

REACTIONS (1)
  - CAROTID ARTERY STENOSIS [None]
